FAERS Safety Report 21881369 (Version 2)
Quarter: 2023Q1

REPORT INFORMATION
  Report Type: Spontaneous
  Country: CN (occurrence: CN)
  Receive Date: 20230119
  Receipt Date: 20230222
  Transmission Date: 20230417
  Serious: Yes (Hospitalization, Other)
  Sender: FDA-Public Use
  Company Number: None

PATIENT
  Age: 56 Year
  Sex: Male

DRUGS (10)
  1. TACROLIMUS [Suspect]
     Active Substance: TACROLIMUS
     Indication: Liver transplant
     Dosage: 3 MILLIGRAM, BID, WITH PLASMA CONCENTRATION OF 3-8 NG/ML
     Route: 065
  2. TACROLIMUS [Suspect]
     Active Substance: TACROLIMUS
     Indication: Immunosuppressant drug therapy
  3. MYCOPHENOLATE MOFETIL [Suspect]
     Active Substance: MYCOPHENOLATE MOFETIL
     Indication: Liver transplant
     Dosage: 500 MILLIGRAM, BID
     Route: 065
  4. MYCOPHENOLATE MOFETIL [Suspect]
     Active Substance: MYCOPHENOLATE MOFETIL
     Indication: Immunosuppressant drug therapy
  5. BASILIXIMAB [Suspect]
     Active Substance: BASILIXIMAB
     Indication: Liver transplant
     Dosage: 20 MILLIGRAM, DURING THE ANHEPATIC PHASE
     Route: 065
  6. BASILIXIMAB [Suspect]
     Active Substance: BASILIXIMAB
     Indication: Immunosuppressant drug therapy
     Dosage: 20 MILLIGRAM, PER DAY, ON POD 4
     Route: 065
  7. METHYLPREDNISOLONE [Suspect]
     Active Substance: METHYLPREDNISOLONE
     Indication: Liver transplant
     Dosage: 1 GRAM, DURING THE ANHEPATIC PHASE (TOTAL)
     Route: 065
  8. METHYLPREDNISOLONE [Suspect]
     Active Substance: METHYLPREDNISOLONE
     Indication: Immunosuppressant drug therapy
  9. SIROLIMUS [Suspect]
     Active Substance: SIROLIMUS
     Indication: Liver transplant
     Dosage: UNK
     Route: 065
  10. SIROLIMUS [Suspect]
     Active Substance: SIROLIMUS
     Indication: Immunosuppression

REACTIONS (8)
  - Central nervous system lesion [Recovered/Resolved]
  - Immunosuppressant drug level increased [Unknown]
  - Human herpesvirus 6 infection [Recovered/Resolved]
  - Central nervous system infection [Recovered/Resolved]
  - Encephalitis [Recovered/Resolved]
  - Seizure [Recovered/Resolved]
  - Opportunistic infection [Unknown]
  - Intracranial infection [Recovered/Resolved]
